FAERS Safety Report 17845455 (Version 6)
Quarter: 2025Q3

REPORT INFORMATION
  Report Type: Report from Study
  Country: US (occurrence: US)
  Receive Date: 20200601
  Receipt Date: 20250805
  Transmission Date: 20251020
  Serious: Yes (Hospitalization, Other)
  Sender: TAKEDA
  Company Number: US-SHIRE-US202014577

PATIENT
  Age: 47 Year
  Sex: Female

DRUGS (7)
  1. PARATHYROID HORMONE [Suspect]
     Active Substance: PARATHYROID HORMONE
     Indication: Hypoparathyroidism
  2. PARATHYROID HORMONE [Suspect]
     Active Substance: PARATHYROID HORMONE
  3. PARATHYROID HORMONE [Suspect]
     Active Substance: PARATHYROID HORMONE
     Dosage: 100 MICROGRAM, QD
  4. PARATHYROID HORMONE [Suspect]
     Active Substance: PARATHYROID HORMONE
     Dosage: 50 MICROGRAM, BID
     Dates: start: 20190304
  5. PARATHYROID HORMONE [Suspect]
     Active Substance: PARATHYROID HORMONE
     Dosage: 50 MICROGRAM, BID
     Dates: start: 20190117
  6. PARATHYROID HORMONE [Suspect]
     Active Substance: PARATHYROID HORMONE
  7. CALCITRIOL [Concomitant]
     Active Substance: CALCITRIOL
     Indication: Product used for unknown indication

REACTIONS (11)
  - Transient ischaemic attack [Unknown]
  - Device delivery system issue [Unknown]
  - Multiple use of single-use product [Unknown]
  - Paraesthesia [Recovered/Resolved]
  - Blood calcium decreased [Recovered/Resolved]
  - Vessel puncture site haemorrhage [Unknown]
  - Poor venous access [Unknown]
  - COVID-19 [Unknown]
  - Incorrect dose administered [Unknown]
  - Device leakage [Unknown]
  - Off label use [Unknown]

NARRATIVE: CASE EVENT DATE: 20200417
